FAERS Safety Report 11180050 (Version 1)
Quarter: 2015Q2

REPORT INFORMATION
  Report Type: Spontaneous
  Country: US (occurrence: US)
  Receive Date: 20150611
  Receipt Date: 20150611
  Transmission Date: 20150821
  Serious: No
  Sender: FDA-Public Use
  Company Number: US-BAYER-2015-325023

PATIENT
  Sex: Male
  Weight: 122.45 kg

DRUGS (1)
  1. MIRALAX [Suspect]
     Active Substance: POLYETHYLENE GLYCOL 3350
     Indication: PREOPERATIVE CARE
     Dosage: 2 DOSE, ONCE
     Route: 048
     Dates: start: 20150609, end: 20150609

REACTIONS (3)
  - Product use issue [None]
  - Expired product administered [None]
  - Off label use [None]

NARRATIVE: CASE EVENT DATE: 20150609
